FAERS Safety Report 4340596-1 (Version None)
Quarter: 2004Q2

REPORT INFORMATION
  Report Type: 
  Country: None (occurrence: None)
  Receive Date: 20040410
  Receipt Date: 20040410
  Transmission Date: 20050107
  Serious: Yes (Hospitalization)
  Sender: FDA-Public Use
  Company Number: None

PATIENT
  Age: 42 Year
  Sex: Female
  Weight: 64.8 kg

DRUGS (13)
  1. IRINOTECAN 50MG/M2 [Suspect]
     Indication: PANCREATIC CARCINOMA
     Dosage: 82 MG IV
     Dates: start: 20040326, end: 20040401
  2. DOCETAXEL [Suspect]
     Dosage: 57 MG IV
     Route: 042
     Dates: start: 20040326, end: 20040401
  3. DILAUDID [Concomitant]
  4. ENOXAPARIN SODIUM [Concomitant]
  5. COZAAR [Concomitant]
  6. SYNTHROID [Concomitant]
  7. LIPITOR [Concomitant]
  8. KCL TAB [Concomitant]
  9. VICODIN [Concomitant]
  10. CREON [Concomitant]
  11. COMPAZINE [Concomitant]
  12. ZOFRAN [Concomitant]
  13. KAYTIL [Concomitant]

REACTIONS (6)
  - ABDOMINAL PAIN [None]
  - ABDOMINAL RIGIDITY [None]
  - DIARRHOEA [None]
  - GASTROOESOPHAGEAL REFLUX DISEASE [None]
  - NAUSEA [None]
  - VOMITING [None]
